FAERS Safety Report 5353433-3 (Version None)
Quarter: 2007Q2

REPORT INFORMATION
  Report Type: 
  Country: None (occurrence: None)
  Receive Date: 20070612
  Receipt Date: 20070604
  Transmission Date: 20071010
  Serious: Yes (Hospitalization, Other)
  Sender: FDA-Public Use
  Company Number: PHBS2007BR09359

PATIENT
  Age: 67 Year
  Sex: Female
  Weight: 60 kg

DRUGS (3)
  1. DICLOFENAC POTASSIUM [Suspect]
     Indication: BACK PAIN
     Dosage: 50 MG, Q6H
     Route: 048
  2. ADALAT [Concomitant]
     Indication: CARDIAC DISORDER
     Dosage: 20 MG, BID
     Route: 048
  3. LASIX [Concomitant]
     Dosage: UNK, QD

REACTIONS (6)
  - ARTHRALGIA [None]
  - BACK PAIN [None]
  - CARDIOMEGALY [None]
  - GAIT DISTURBANCE [None]
  - HYPERTENSION [None]
  - OEDEMA [None]
